FAERS Safety Report 5008052-5 (Version None)
Quarter: 2006Q1

REPORT INFORMATION
  Report Type: 
  Country: None (occurrence: None)
  Receive Date: 20060329
  Receipt Date: 20050822
  Transmission Date: 20060701
  Serious: Yes (Other)
  Sender: FDA-Public Use
  Company Number: HQWYE084824AUG05

PATIENT
  Age: 18 Year
  Sex: Female
  Weight: 61.29 kg

DRUGS (1)
  1. MINOCIN [Suspect]
     Indication: ACNE
     Dosage: ORAL
     Route: 048
     Dates: end: 20050822

REACTIONS (3)
  - ARTHRALGIA [None]
  - AUTOIMMUNE HEPATITIS [None]
  - SWELLING [None]
